FAERS Safety Report 5112545-X (Version None)
Quarter: 2006Q3

REPORT INFORMATION
  Report Type: 
  Country: None (occurrence: None)
  Receive Date: 20060922
  Receipt Date: 20041208
  Transmission Date: 20061208
  Serious: Yes (Hospitalization)
  Sender: FDA-Public Use
  Company Number: NO-ROCHE-388724

PATIENT
  Age: 54 Year
  Sex: Male

DRUGS (8)
  1. RIVOTRIL [Suspect]
     Indication: ANXIETY
     Dosage: DOSAGE REPORTED AS UP TO 2.5 MG DAILY.
     Route: 048
     Dates: start: 19910615, end: 20010615
  2. RIVOTRIL [Suspect]
     Route: 048
     Dates: start: 20010615, end: 20040615
  3. RIVOTRIL [Suspect]
     Route: 048
     Dates: start: 20040615
  4. RIVOTRIL [Suspect]
     Dosage: REPORTED AS END OF 2005 TO BEGINNING OF 2006.
     Route: 048
     Dates: start: 20051215, end: 20060115
  5. ZOCOR [Suspect]
     Route: 048
     Dates: start: 19970615, end: 20050603
  6. AZITROMAX [Suspect]
     Indication: DRUG USE FOR UNKNOWN INDICATION
     Route: 048
     Dates: start: 20050528, end: 20050530
  7. PRAVACHOL [Concomitant]
     Indication: BLOOD CHOLESTEROL INCREASED
     Route: 048
  8. VITAMINS NOS [Concomitant]
     Route: 048

REACTIONS (7)
  - ARTHRALGIA [None]
  - MUSCLE SPASMS [None]
  - MUSCLE TIGHTNESS [None]
  - MYALGIA [None]
  - PANCREATITIS [None]
  - RASH PRURITIC [None]
  - TINNITUS [None]
